FAERS Safety Report 7178779-8 (Version None)
Quarter: 2010Q4

REPORT INFORMATION
  Report Type: 
  Country: None (occurrence: None)
  Receive Date: 20101221
  Receipt Date: 20101210
  Transmission Date: 20110411
  Serious: Yes (Other)
  Sender: FDA-Public Use
  Company Number: IT-JNJFOC-20101204896

PATIENT
  Age: 48 Year
  Sex: Male

DRUGS (4)
  1. HALDOL [Suspect]
     Indication: ILL-DEFINED DISORDER
     Route: 048
  2. ZOLOFT [Suspect]
     Indication: ILL-DEFINED DISORDER
     Route: 048
  3. TAVOR [Suspect]
     Indication: ILL-DEFINED DISORDER
     Route: 048
  4. DISIPAL [Suspect]
     Indication: ILL-DEFINED DISORDER
     Route: 048

REACTIONS (4)
  - COMA [None]
  - MYDRIASIS [None]
  - PAIN [None]
  - SELF INJURIOUS BEHAVIOUR [None]
